FAERS Safety Report 25102405 (Version 1)
Quarter: 2025Q1

REPORT INFORMATION
  Report Type: Spontaneous
  Country: US (occurrence: US)
  Receive Date: 20250320
  Receipt Date: 20250320
  Transmission Date: 20250408
  Serious: No
  Sender: ELI LILLY AND COMPANY
  Company Number: US-ELI_LILLY_AND_COMPANY-US202503015694

PATIENT
  Age: 50 Year
  Sex: Female

DRUGS (1)
  1. TIRZEPATIDE [Suspect]
     Active Substance: TIRZEPATIDE
     Indication: Product used for unknown indication
     Dosage: 6 MG, WEEKLY (1/W)
     Route: 058

REACTIONS (3)
  - Product tampering [Unknown]
  - Injection site urticaria [Unknown]
  - Injection site erythema [Unknown]
